FAERS Safety Report 7837770-6 (Version None)
Quarter: 2011Q4

REPORT INFORMATION
  Report Type: 
  Country: None (occurrence: None)
  Receive Date: 20111024
  Receipt Date: 20110709
  Transmission Date: 20120403
  Serious: No
  Sender: FDA-Public Use
  Company Number: US-BAYER-2011-059888

PATIENT
  Sex: Female

DRUGS (6)
  1. ZYRTEC [Concomitant]
  2. AVELOX [Suspect]
     Dosage: UNK, QD
     Dates: start: 20110706, end: 20110707
  3. KLONOPIN [Concomitant]
  4. SINGULAIR [Concomitant]
  5. ETHINYL ESTRADIOL AND NORETHINDRONE [Concomitant]
  6. POTASSIUM [Concomitant]

REACTIONS (4)
  - URTICARIA [None]
  - PRURITUS GENERALISED [None]
  - ERYTHEMA [None]
  - HYPERSENSITIVITY [None]
